FAERS Safety Report 7183656-2 (Version None)
Quarter: 2010Q4

REPORT INFORMATION
  Report Type: 
  Country: None (occurrence: None)
  Receive Date: 20101220
  Receipt Date: 20101220
  Transmission Date: 20110411
  Serious: Yes (Hospitalization)
  Sender: FDA-Public Use
  Company Number: None

PATIENT
  Age: 77 Year
  Sex: Male
  Weight: 100 kg

DRUGS (16)
  1. PLAVIX [Suspect]
     Indication: CORONARY ARTERY DISEASE
     Dosage: 75MG DAILY PO  CHRONIC
     Route: 048
  2. ASPIRIN [Suspect]
     Indication: CORONARY ARTERY DISEASE
     Dosage: 325MG DAILY PO  CHRONIC
     Route: 048
  3. METOPROLOL [Concomitant]
  4. VYTORIN [Concomitant]
  5. HYDROCHLOROTHIAZIDE [Concomitant]
  6. OMEPRAZOLE [Concomitant]
  7. GLIMEPIRIDE [Concomitant]
  8. AMLODIPINE [Concomitant]
  9. METFORMIN HCL [Concomitant]
  10. NABUMETONE [Concomitant]
  11. QUINAPRIL [Concomitant]
  12. M.V.I. [Concomitant]
  13. TYLENOL [Concomitant]
  14. NIASPAN [Concomitant]
  15. ASTELIN [Concomitant]
  16. CHONDROITIN/GLUCASOM [Concomitant]

REACTIONS (5)
  - BRAIN MIDLINE SHIFT [None]
  - FALL [None]
  - SUBARACHNOID HAEMORRHAGE [None]
  - SUBDURAL HAEMATOMA [None]
  - SYNCOPE [None]
